FAERS Safety Report 4731075-8 (Version None)
Quarter: 2005Q3

REPORT INFORMATION
  Report Type: 
  Country: None (occurrence: None)
  Receive Date: 20050726
  Receipt Date: 20050316
  Transmission Date: 20060218
  Serious: Yes (Death)
  Sender: FDA-Public Use
  Company Number: 05GER0035

PATIENT
  Age: 69 Year
  Sex: Female

DRUGS (2)
  1. AGGRASTAT [Suspect]
     Indication: ACUTE CORONARY SYNDROME
     Dosage: 3ML
     Dates: start: 20030721, end: 20030721
  2. ALTEPLASE (ALTEPLASE) (150 MILLIGRAM) [Suspect]
     Indication: BASILAR ARTERY THROMBOSIS
     Dosage: 150MG/ QD
     Dates: start: 20030721, end: 20030721

REACTIONS (2)
  - BASILAR ARTERY THROMBOSIS [None]
  - CEREBRAL HAEMORRHAGE [None]
